FAERS Safety Report 4560874-0 (Version None)
Quarter: 2005Q1

REPORT INFORMATION
  Report Type: 
  Country: None (occurrence: None)
  Receive Date: 20050121
  Receipt Date: 20050111
  Transmission Date: 20050727
  Serious: Yes (Death, Life-Threatening, Hospitalization)
  Sender: FDA-Public Use
  Company Number: 2004CG02354

PATIENT
  Age: 53 Year
  Sex: Male
  Weight: 60 kg

DRUGS (4)
  1. IRESSA [Suspect]
     Indication: BRONCHIOLOALVEOLAR CARCINOMA
     Dosage: 250 MG QD PO
     Route: 048
     Dates: start: 20041022, end: 20041109
  2. IRESSA [Suspect]
     Indication: BRONCHIOLOALVEOLAR CARCINOMA
     Dosage: 250 MG QD PO
     Route: 048
     Dates: start: 20041112, end: 20041116
  3. CARBOPLATIN [Concomitant]
  4. GEMZAR [Concomitant]

REACTIONS (15)
  - ACUTE RESPIRATORY DISTRESS SYNDROME [None]
  - BLOOD CREATININE DECREASED [None]
  - BLOOD OSMOLARITY DECREASED [None]
  - COMA [None]
  - CRYSTALLURIA [None]
  - DIABETES INSIPIDUS [None]
  - DISEASE PROGRESSION [None]
  - FUNGUS URINE TEST POSITIVE [None]
  - HYPOXIA [None]
  - LUNG INFECTION [None]
  - MYCOPLASMA INFECTION [None]
  - PROTEINURIA [None]
  - RED BLOOD CELLS URINE POSITIVE [None]
  - RESPIRATORY ACIDOSIS [None]
  - SHOCK [None]
